FAERS Safety Report 21363666 (Version 1)
Quarter: 2022Q3

REPORT INFORMATION
  Report Type: Spontaneous
  Country: CN (occurrence: None)
  Receive Date: 20220922
  Receipt Date: 20220922
  Transmission Date: 20221027
  Serious: Yes (Hospitalization)
  Sender: FDA-Public Use
  Company Number: CN-Eisai Medical Research-EC-2022-124027

PATIENT
  Age: 56 Year
  Sex: Female
  Weight: 45 kg

DRUGS (2)
  1. HALAVEN [Suspect]
     Active Substance: ERIBULIN MESYLATE
     Indication: Breast cancer
     Route: 041
     Dates: start: 20220831
  2. PYROTINIB MALEATE [Concomitant]
     Active Substance: PYROTINIB MALEATE
     Indication: Metastases to central nervous system
     Dosage: FREQUENCY UNKNOWN
     Route: 048
     Dates: start: 20220901, end: 20220907

REACTIONS (1)
  - White blood cell count decreased [Recovering/Resolving]

NARRATIVE: CASE EVENT DATE: 20220910
